FAERS Safety Report 9118359 (Version 2)
Quarter: 2013Q1

REPORT INFORMATION
  Report Type: Spontaneous
  Country: IT (occurrence: None)
  Receive Date: 20130128
  Receipt Date: 20130204
  Transmission Date: 20140127
  Serious: Yes (Hospitalization)
  Sender: FDA-Public Use
  Company Number: AUR-APL-2013-00939

PATIENT
  Age: 85 Year
  Sex: Female

DRUGS (8)
  1. METFORMIN (METFORMIN) [Suspect]
     Indication: DIABETES MELLITUS
     Route: 048
     Dates: start: 20120101, end: 20120826
  2. DIAMICRON [Suspect]
     Indication: DIABETES MELLITUS
     Route: 048
     Dates: start: 20120825, end: 20120826
  3. TORVAST (ATORVASTATIN CALCIUM) [Concomitant]
  4. CARDIRENE (ACETYLSALICYLATE LYSINE) [Concomitant]
  5. MICARDIS (TELMISARTAN) [Concomitant]
  6. EFEXOR (VENLAFAXINE) [Concomitant]
  7. EUTIROX (LEVOTHYROXINE) [Concomitant]
  8. PANTORC (PANTOPRAZOLE SODIUM) [Concomitant]

REACTIONS (7)
  - Chest pain [None]
  - Dyspnoea [None]
  - Vomiting [None]
  - Dysstasia [None]
  - Blood creatinine increased [None]
  - Blood urea increased [None]
  - Blood glucose increased [None]
